FAERS Safety Report 12585782 (Version 2)
Quarter: 2016Q3

REPORT INFORMATION
  Report Type: Spontaneous
  Country: BR (occurrence: BR)
  Receive Date: 20160725
  Receipt Date: 20160824
  Transmission Date: 20161109
  Serious: Yes (Other)
  Sender: FDA-Public Use
  Company Number: BR-009507513-1607BRA009584

PATIENT
  Age: 53 Year
  Sex: Male
  Weight: 67 kg

DRUGS (4)
  1. BUSONID [Suspect]
     Active Substance: BUDESONIDE
     Indication: RHINORRHOEA
     Dosage: UNK
     Dates: start: 20160713
  2. BUSONID [Suspect]
     Active Substance: BUDESONIDE
     Indication: DYSPNOEA
  3. DESALEX D12 [Suspect]
     Active Substance: DESLORATADINE\PSEUDOEPHEDRINE SULFATE
     Indication: RHINORRHOEA
     Dosage: ONE TABLET EVERY 12 HOURS
     Route: 048
     Dates: start: 20160713, end: 20160716
  4. DESALEX D12 [Suspect]
     Active Substance: DESLORATADINE\PSEUDOEPHEDRINE SULFATE
     Indication: DYSPNOEA

REACTIONS (7)
  - Decreased appetite [Recovered/Resolved]
  - Abdominal pain upper [Recovered/Resolved]
  - Dry mouth [Recovered/Resolved]
  - Blood pressure abnormal [Recovered/Resolved]
  - Neck pain [Recovered/Resolved]
  - Urinary retention [Recovered/Resolved]
  - Headache [Recovered/Resolved]

NARRATIVE: CASE EVENT DATE: 20160713
